FAERS Safety Report 8650373 (Version 2)
Quarter: 2013Q4

REPORT INFORMATION
  Report Type: Spontaneous
  Country: BR (occurrence: BR)
  Receive Date: 20120705
  Receipt Date: 20131217
  Transmission Date: 20140711
  Serious: Yes (Other)
  Sender: FDA-Public Use
  Company Number: BR-PFIZER INC-2012158078

PATIENT
  Age: 58 Year
  Sex: Female
  Weight: 87 kg

DRUGS (4)
  1. LYRICA [Suspect]
     Indication: FIBROMYALGIA
     Dosage: UNSPECIFIED DOSE, TWICE A DAY
     Route: 048
     Dates: start: 20120612
  2. DIOVAN [Concomitant]
     Indication: BLOOD PRESSURE INCREASED
     Dosage: UNK
     Dates: start: 201204
  3. PURAN T4 [Concomitant]
     Indication: HYPOTHYROIDISM
     Dosage: UNSPECIFIED DOSE, ONCE A DAY
     Dates: start: 1997
  4. TIBOLONE [Concomitant]
     Indication: HORMONE REPLACEMENT THERAPY
     Dosage: UNK

REACTIONS (15)
  - Fluid retention [Unknown]
  - Feeling of despair [Unknown]
  - Urticaria [Unknown]
  - Confusional state [Not Recovered/Not Resolved]
  - Irritability [Not Recovered/Not Resolved]
  - Eye swelling [Unknown]
  - Hypoaesthesia oral [Not Recovered/Not Resolved]
  - Paraesthesia oral [Not Recovered/Not Resolved]
  - Fatigue [Not Recovered/Not Resolved]
  - Insomnia [Unknown]
  - Muscle spasms [Unknown]
  - Headache [Unknown]
  - Feeling drunk [Unknown]
  - Sedation [Unknown]
  - Feeling abnormal [Unknown]
